FAERS Safety Report 5325064-2 (Version None)
Quarter: 2007Q2

REPORT INFORMATION
  Report Type: 
  Country: None (occurrence: None)
  Receive Date: 20070511
  Receipt Date: 20070511
  Transmission Date: 20071010
  Serious: No
  Sender: FDA-Public Use
  Company Number: None

PATIENT
  Age: 45 Year
  Sex: Female
  Weight: 105.2345 kg

DRUGS (1)
  1. MONISTAT 3 [Suspect]
     Indication: VULVOVAGINAL MYCOTIC INFECTION
     Dosage: ONE SUPPOSITORY 24 HOURS VAG
     Route: 067
     Dates: start: 20040504, end: 20070504

REACTIONS (1)
  - DYSPNOEA [None]
